FAERS Safety Report 24443629 (Version 2)
Quarter: 2024Q4

REPORT INFORMATION
  Report Type: Report from Study
  Country: US (occurrence: US)
  Receive Date: 20241016
  Receipt Date: 20241017
  Transmission Date: 20250114
  Serious: No
  Sender: ROCHE
  Company Number: US-ROCHE-2103900

PATIENT
  Age: 27 Year
  Sex: Female

DRUGS (8)
  1. RITUXAN [Suspect]
     Active Substance: RITUXIMAB
     Indication: Cyclitis
     Dosage: ON 31/JAN/2018, 07/FEB/2018, 14/FEB/2018,  21/FEB/2018 AND 28/FEB/2018, SHE RECEIVED 550 MG DOSE.
     Route: 042
     Dates: start: 20180122
  2. RITUXAN [Suspect]
     Active Substance: RITUXIMAB
     Indication: Retinal oedema
     Route: 042
  3. RITUXAN [Suspect]
     Active Substance: RITUXIMAB
     Indication: Noninfective chorioretinitis
  4. RITUXAN [Suspect]
     Active Substance: RITUXIMAB
     Indication: Noninfective chorioretinitis
  5. ACTEMRA [Suspect]
     Active Substance: TOCILIZUMAB
     Indication: Noninfective chorioretinitis
     Route: 042
  6. ACTEMRA [Suspect]
     Active Substance: TOCILIZUMAB
     Indication: Noninfective chorioretinitis
  7. REMICADE [Concomitant]
     Active Substance: INFLIXIMAB
  8. SOLU-MEDROL [Concomitant]
     Active Substance: METHYLPREDNISOLONE SODIUM SUCCINATE

REACTIONS (2)
  - Off label use [Unknown]
  - No adverse event [Unknown]
